FAERS Safety Report 11594160 (Version 2)
Quarter: 2015Q4

REPORT INFORMATION
  Report Type: Report from Study
  Country: CA (occurrence: CA)
  Receive Date: 20151005
  Receipt Date: 20151207
  Transmission Date: 20160304
  Serious: Yes (Other)
  Sender: FDA-Public Use
  Company Number: CA-ABBVIE-15K-028-1472453-00

PATIENT
  Sex: Female
  Weight: 55.39 kg

DRUGS (4)
  1. HUMIRA [Suspect]
     Active Substance: ADALIMUMAB
     Indication: CROHN^S DISEASE
     Route: 058
  2. HUMIRA [Suspect]
     Active Substance: ADALIMUMAB
     Route: 058
     Dates: start: 2015
  3. METHOTREXATE [Concomitant]
     Active Substance: METHOTREXATE
     Indication: CROHN^S DISEASE
     Route: 058
     Dates: end: 201506
  4. CLONAZEPAM. [Concomitant]
     Active Substance: CLONAZEPAM
     Indication: ANXIETY
     Dosage: DAILY AS NEEDED
     Route: 048

REACTIONS (9)
  - Drug level decreased [Not Recovered/Not Resolved]
  - Crohn^s disease [Recovering/Resolving]
  - Pain [Unknown]
  - Post procedural discharge [Recovered/Resolved]
  - Intestinal fibrosis [Recovering/Resolving]
  - Drug ineffective [Not Recovered/Not Resolved]
  - Gastrointestinal stenosis [Recovering/Resolving]
  - Fistula [Recovering/Resolving]
  - Transgender operation [Unknown]

NARRATIVE: CASE EVENT DATE: 2015
